FAERS Safety Report 20207475 (Version 1)
Quarter: 2021Q4

REPORT INFORMATION
  Report Type: Spontaneous
  Country: US (occurrence: US)
  Receive Date: 20211220
  Receipt Date: 20211220
  Transmission Date: 20220303
  Serious: Yes (Death, Other)
  Sender: FDA-Public Use
  Company Number: US-PFIZER INC-202101741592

PATIENT
  Age: 10 Month
  Sex: Male
  Weight: 9.977 kg

DRUGS (1)
  1. TESSALON [Suspect]
     Active Substance: BENZONATATE
     Dosage: UNK
     Route: 048

REACTIONS (7)
  - Toxicity to various agents [Fatal]
  - Accidental exposure to product [Fatal]
  - Seizure [Unknown]
  - Loss of consciousness [Unknown]
  - Eye movement disorder [Unknown]
  - Foaming at mouth [Unknown]
  - Gait disturbance [Unknown]

NARRATIVE: CASE EVENT DATE: 20200824
